FAERS Safety Report 15607381 (Version 1)
Quarter: 2018Q4

REPORT INFORMATION
  Report Type: Spontaneous
  Country: DE (occurrence: DE)
  Receive Date: 20181112
  Receipt Date: 20181112
  Transmission Date: 20190205
  Serious: Yes (Other)
  Sender: FDA-Public Use
  Company Number: DE-TEVA-2018-DE-970458

PATIENT
  Sex: Male

DRUGS (1)
  1. VALSARTAN ABZ 120 MG FILMTABLETTEN [Suspect]
     Active Substance: VALSARTAN
     Route: 048

REACTIONS (1)
  - Haemorrhage subcutaneous [Unknown]
